FAERS Safety Report 17780922 (Version 1)
Quarter: 2020Q2

REPORT INFORMATION
  Report Type: Spontaneous
  Country: SE (occurrence: SE)
  Receive Date: 20200514
  Receipt Date: 20200514
  Transmission Date: 20200714
  Serious: Yes (Other)
  Sender: FDA-Public Use
  Company Number: NVSC2020SE129081

PATIENT
  Age: 5 Decade
  Sex: Female

DRUGS (9)
  1. CANNABIDIOL [Suspect]
     Active Substance: CANNABIDIOL
     Dosage: 20 MG, QD
     Route: 065
     Dates: start: 201705
  2. LEVETIRACETAM. [Suspect]
     Active Substance: LEVETIRACETAM
     Indication: GENERALISED TONIC-CLONIC SEIZURE
     Dosage: 2000 MG, QD
     Route: 065
     Dates: start: 20160722, end: 20160728
  3. LACOSAMIDE. [Suspect]
     Active Substance: LACOSAMIDE
     Indication: GENERALISED TONIC-CLONIC SEIZURE
     Dosage: 100 MG, QD
     Route: 065
     Dates: start: 201705
  4. LEVETIRACETAM. [Suspect]
     Active Substance: LEVETIRACETAM
     Dosage: 1000 MG, QD
     Route: 065
     Dates: start: 201705
  5. LEVETIRACETAM. [Suspect]
     Active Substance: LEVETIRACETAM
     Dosage: 2500 MG, QD
     Route: 065
     Dates: start: 20160728
  6. CANNABIDIOL [Suspect]
     Active Substance: CANNABIDIOL
     Indication: GENERALISED TONIC-CLONIC SEIZURE
     Dosage: 200 MG, QD
     Route: 065
     Dates: start: 20160805, end: 201705
  7. ESLICARBAZEPINE [Suspect]
     Active Substance: ESLICARBAZEPINE
     Indication: GENERALISED TONIC-CLONIC SEIZURE
     Dosage: 100 MG, QD
     Route: 065
     Dates: start: 201705
  8. LEVETIRACETAM. [Suspect]
     Active Substance: LEVETIRACETAM
     Dosage: 1000 MG, QD
     Route: 065
     Dates: start: 201603, end: 20160722
  9. LEVETIRACETAM. [Suspect]
     Active Substance: LEVETIRACETAM
     Dosage: 3000 MG, QD
     Route: 065
     Dates: start: 20160805, end: 201705

REACTIONS (5)
  - Headache [Unknown]
  - Fatigue [Unknown]
  - Anxiety [Unknown]
  - Multiple-drug resistance [Unknown]
  - Suicidal ideation [Recovering/Resolving]
